FAERS Safety Report 18111501 (Version 1)
Quarter: 2020Q3

REPORT INFORMATION
  Report Type: Spontaneous
  Country: NL (occurrence: NL)
  Receive Date: 20200805
  Receipt Date: 20200805
  Transmission Date: 20201103
  Serious: Yes (Other)
  Sender: FDA-Public Use
  Company Number: NL-TEVA-2020-NL-1808885

PATIENT
  Age: 69 Year
  Sex: Female

DRUGS (5)
  1. SIMVASTATINE TABLET FO 40MG / BRAND NAME NOT SPECIFIED [Suspect]
     Active Substance: SIMVASTATIN
     Indication: CEREBROVASCULAR ACCIDENT
     Dosage: 40 MILLIGRAM DAILY;
     Dates: start: 20200703, end: 20200707
  2. CARBASALAATCALCIUM POEDER 100MG / BRAND NAME NOT SPECIFIED [Concomitant]
     Dosage: BAG (POWDER), 100 MG (MILLIGRAM); THERAPY START DATE AND END DATE: ASKED BUT UNKNOWN
  3. CLOPIDOGREL TABLET   75MG / BRAND NAME NOT SPECIFIED [Concomitant]
     Dosage: 75 MG (MILLIGRAM); THERAPY START DATE AND END DATE: ASKED BUT UNKNOWN
  4. PANTOPRAZOL TABLET MSR 40MG / PANTOZOL TABLET MSR 40MG [Concomitant]
     Dosage: 40 MG (MILLIGRAMS); THERAPY START DATE AND END DATE: ASKED BUT UNKNOWN
  5. SIMVASTATINE TABLET FO 40MG / BRAND NAME NOT SPECIFIED [Suspect]
     Active Substance: SIMVASTATIN
     Indication: TRANSIENT ISCHAEMIC ATTACK

REACTIONS (5)
  - Dyspnoea [Recovered/Resolved]
  - Increased bronchial secretion [Recovered/Resolved]
  - Myalgia [Recovered/Resolved]
  - Swollen tongue [Recovered/Resolved]
  - Pharyngeal swelling [Recovered/Resolved]

NARRATIVE: CASE EVENT DATE: 20200703
